FAERS Safety Report 10150394 (Version 1)
Quarter: 2014Q2

REPORT INFORMATION
  Report Type: Spontaneous
  Country: FR (occurrence: FR)
  Receive Date: 20140502
  Receipt Date: 20140502
  Transmission Date: 20141212
  Serious: Yes (Life-Threatening, Hospitalization)
  Sender: FDA-Public Use
  Company Number: FR-B.I. PHARMACEUTICALS,INC./RIDGEFIELD-2014-BI-19357FF

PATIENT
  Age: 71 Year
  Sex: Male

DRUGS (4)
  1. ATROVENT [Suspect]
     Indication: PRODUCT USED FOR UNKNOWN INDICATION
     Dosage: DOSE PER APPLICATION:0.5MG/2ML
     Route: 055
     Dates: start: 20140402, end: 20140403
  2. BRICANYL 5MG/2ML [Suspect]
     Indication: PRODUCT USED FOR UNKNOWN INDICATION
     Dosage: DOSE PER APPLICATION:5MG/2ML
     Route: 055
     Dates: start: 20140402, end: 20140403
  3. LASILIX [Concomitant]
     Route: 065
  4. AUGMENTIN [Concomitant]
     Dosage: 3 G
     Route: 048
     Dates: start: 20140402, end: 20140402

REACTIONS (1)
  - Ventricular tachycardia [Recovered/Resolved]
